FAERS Safety Report 13051885 (Version 1)
Quarter: 2016Q4

REPORT INFORMATION
  Report Type: Spontaneous
  Country: VE (occurrence: VE)
  Receive Date: 20161221
  Receipt Date: 20161221
  Transmission Date: 20170207
  Serious: Yes (Other)
  Sender: FDA-Public Use
  Company Number: PHHY2016VE173967

PATIENT
  Sex: Female

DRUGS (9)
  1. MEMANTINE. [Concomitant]
     Active Substance: MEMANTINE
     Indication: NERVOUS SYSTEM DISORDER
     Dosage: 20 MG, QD (SINCE 4 MONTH)
     Route: 065
  2. FLAGYL [Concomitant]
     Active Substance: METRONIDAZOLE\METRONIDAZOLE HYDROCHLORIDE
     Indication: PRODUCT USED FOR UNKNOWN INDICATION
     Route: 065
  3. ARCALION [Concomitant]
     Active Substance: SULBUTIAMINE
     Indication: PRODUCT USED FOR UNKNOWN INDICATION
     Dosage: 400 MG, QD (SINCE JUL)
     Route: 065
  4. VYTORIN [Concomitant]
     Active Substance: EZETIMIBE\SIMVASTATIN
     Indication: PRODUCT USED FOR UNKNOWN INDICATION
     Dosage: 10/20 MG, QD (START DATE SINCE ONE MONTH)
     Route: 065
  5. EXELON PATCH [Suspect]
     Active Substance: RIVASTIGMINE
     Indication: VASCULAR DEMENTIA
     Dosage: 9.5MG, QD (18 MG/24H, PATCH 10 CM2)
     Route: 003
     Dates: start: 201605
  6. TROPOCER [Concomitant]
     Dosage: 180 MG, QD (UNSPECIFIED)
     Route: 065
  7. EXELON PATCH [Suspect]
     Active Substance: RIVASTIGMINE
     Indication: DEMENTIA ALZHEIMER^S TYPE
  8. TROPOCER [Concomitant]
     Indication: CEREBRAL HYPOPERFUSION
     Dosage: 90 MG, QD (SINCE ONE MONTH)
     Route: 065
  9. ARCALION [Concomitant]
     Active Substance: SULBUTIAMINE
     Indication: NERVOUS SYSTEM DISORDER
     Dosage: 400 MG, QD (SINCE ONE MONTH)
     Route: 065

REACTIONS (7)
  - Product use issue [Unknown]
  - Neurological symptom [Unknown]
  - Motor dysfunction [Unknown]
  - Mental impairment [Unknown]
  - Mental disorder [Unknown]
  - General physical health deterioration [Unknown]
  - Memory impairment [Unknown]
